FAERS Safety Report 10628701 (Version 1)
Quarter: 2014Q4

REPORT INFORMATION
  Report Type: Spontaneous
  Country: US (occurrence: US)
  Receive Date: 20141205
  Receipt Date: 20141205
  Transmission Date: 20150529
  Serious: No
  Sender: FDA-Public Use
  Company Number: US-BRISTOL-MYERS SQUIBB COMPANY-21557335

PATIENT
  Age: 6 Year
  Sex: Male

DRUGS (1)
  1. ABILIFY [Suspect]
     Active Substance: ARIPIPRAZOLE
     Dosage: 0.5ML X 3D, 1ML X 3D, 1.5ML.?ABILIFY LIQUID

REACTIONS (1)
  - Drug ineffective [Unknown]
